FAERS Safety Report 21264643 (Version 11)
Quarter: 2024Q1

REPORT INFORMATION
  Report Type: Report from Study
  Country: US (occurrence: US)
  Receive Date: 20220829
  Receipt Date: 20240105
  Transmission Date: 20240409
  Serious: No
  Sender: FDA-Public Use
  Company Number: US-002147023-NVSC2022US189366

PATIENT
  Age: 75 Year
  Sex: Male

DRUGS (1)
  1. COSENTYX [Suspect]
     Active Substance: SECUKINUMAB
     Indication: Psoriasis
     Dosage: 300 MG, QMO
     Route: 058
     Dates: start: 20200512

REACTIONS (6)
  - Device breakage [Unknown]
  - Vessel puncture site injury [Unknown]
  - Injection site haemorrhage [Unknown]
  - Psoriasis [Unknown]
  - Pruritus [Unknown]
  - Product dose omission issue [Unknown]

NARRATIVE: CASE EVENT DATE: 20221108
